FAERS Safety Report 6023828-3 (Version None)
Quarter: 2008Q4

REPORT INFORMATION
  Report Type: 
  Country: None (occurrence: None)
  Receive Date: 20081230
  Receipt Date: 20081217
  Transmission Date: 20090506
  Serious: Yes (Hospitalization)
  Sender: FDA-Public Use
  Company Number: KR-PFIZER INC-2008097427

PATIENT
  Sex: Male
  Weight: 74 kg

DRUGS (6)
  1. SUNITINIB MALATE [Suspect]
     Indication: HEPATIC NEOPLASM MALIGNANT
     Dosage: 37.5 MG, 1X/DAY
     Route: 048
     Dates: start: 20081016
  2. GLIMEPIRIDE [Concomitant]
     Indication: DIABETES MELLITUS
     Dosage: 2 MG, 1X/DAY
     Dates: start: 20060523
  3. MULTI-VITAMINS [Concomitant]
     Indication: HEPATITIS B VIRUS TEST
     Dosage: 1 TABLETS, QD
     Dates: start: 20060523
  4. PROPRANOLOL [Concomitant]
     Indication: HEPATIC CIRRHOSIS
     Dosage: 40 MG, 1X/DAY
     Dates: start: 20060523
  5. URSODIOL [Concomitant]
     Indication: HEPATITIS B VIRUS TEST
     Dosage: 1 TABLETS, 3 X DAY
     Dates: start: 20060523
  6. ENTECAVIR [Concomitant]
     Indication: HEPATITIS B VIRUS TEST
     Dosage: 0.5 MG, 1X/DAY
     Dates: start: 20070904

REACTIONS (1)
  - GASTROINTESTINAL HAEMORRHAGE [None]
